FAERS Safety Report 9851795 (Version 1)
Quarter: 2014Q1

REPORT INFORMATION
  Report Type: Spontaneous
  Country: AU (occurrence: AU)
  Receive Date: 20140129
  Receipt Date: 20140129
  Transmission Date: 20141002
  Serious: Yes (Other)
  Sender: FDA-Public Use
  Company Number: AU-ASTRAZENECA-2014SE05021

PATIENT
  Age: 71 Year
  Sex: Female

DRUGS (6)
  1. CRESTOR [Suspect]
     Indication: PRODUCT USED FOR UNKNOWN INDICATION
     Route: 048
  2. GLIVEC [Interacting]
     Indication: GASTROINTESTINAL STROMAL TUMOUR
     Route: 048
  3. ACIMAX [Concomitant]
  4. CARTIA [Concomitant]
  5. MICARDIS [Concomitant]
  6. SOLAVERT [Concomitant]

REACTIONS (3)
  - Drug interaction [Unknown]
  - Pleural effusion [Recovering/Resolving]
  - Oedema peripheral [Recovering/Resolving]
